FAERS Safety Report 15892615 (Version 2)
Quarter: 2019Q1

REPORT INFORMATION
  Report Type: Spontaneous
  Country: US (occurrence: US)
  Receive Date: 20190130
  Receipt Date: 20190313
  Transmission Date: 20190417
  Serious: Yes (Hospitalization)
  Sender: FDA-Public Use
  Company Number: PHEH2019US003626

PATIENT
  Sex: Female

DRUGS (1)
  1. METHYLPREDNISOLONE TABLETS USP [Suspect]
     Active Substance: METHYLPREDNISOLONE
     Indication: PRODUCT USED FOR UNKNOWN INDICATION
     Dosage: 4 MG, UNK
     Route: 065

REACTIONS (6)
  - Asthma [Unknown]
  - Product use complaint [Unknown]
  - Incorrect dose administered [Unknown]
  - Irritability [Unknown]
  - Wrong technique in product usage process [Unknown]
  - Feeling abnormal [Unknown]
